FAERS Safety Report 5534705-6 (Version None)
Quarter: 2007Q4

REPORT INFORMATION
  Report Type: 
  Country: None (occurrence: None)
  Receive Date: 20071130
  Receipt Date: 20071120
  Transmission Date: 20080405
  Serious: Yes (Death)
  Sender: FDA-Public Use
  Company Number: 2002-09-0151

PATIENT
  Age: 72 Year
  Sex: Female

DRUGS (2)
  1. THALOMID [Suspect]
     Indication: METASTATIC MALIGNANT MELANOMA
     Dosage: 200-400MG IN A DOSE-ESCALATING MANNER, EACH EVENING, ORAL
     Route: 048
  2. INTERFERON ALFA-2B [Suspect]
     Indication: METASTATIC MALIGNANT MELANOMA
     Dosage: 1 MILLION UNITS, TWICE DAILY, SUBCUTANEOUS
     Route: 058

REACTIONS (1)
  - MALIGNANT NEOPLASM PROGRESSION [None]
